FAERS Safety Report 5038641-3 (Version None)
Quarter: 2006Q2

REPORT INFORMATION
  Report Type: 
  Country: None (occurrence: None)
  Receive Date: 20060623
  Receipt Date: 20060524
  Transmission Date: 20061013
  Serious: Yes (Death, Other)
  Sender: FDA-Public Use
  Company Number: 2006014922

PATIENT
  Age: 85 Year
  Sex: Male
  Weight: 70 kg

DRUGS (17)
  1. NORVASC [Suspect]
     Indication: ILL-DEFINED DISORDER
  2. LYRICA [Suspect]
     Indication: NEURALGIA
     Dosage: 75 MG (75 MG, 1 IN 1 D), ORAL
     Route: 048
     Dates: start: 20060117
  3. AMITRIPTYLINE HCL [Concomitant]
  4. RAMIPRIL [Concomitant]
  5. CARVEDILOL [Concomitant]
  6. NEXIUM [Concomitant]
  7. LOCOL (FLUVASTATIN SODIUM) [Concomitant]
  8. ALLOPURINOL [Concomitant]
  9. TOREM (TORASEMIDE) [Concomitant]
  10. ACETYLCYSTEINE [Concomitant]
  11. BERLOSIN (METAMIZOLE SODIUM) [Concomitant]
  12. XIPAMIDE (XIPAMIDE) [Concomitant]
  13. OSYROL (SPIRONOLACTONE) [Concomitant]
  14. OXYCODONE HCL [Concomitant]
  15. ALPROSTADIL [Concomitant]
  16. ARTHROTEC [Concomitant]
  17. COLCHYSAT (COLCHICUM TINCTURE) [Concomitant]

REACTIONS (22)
  - ABDOMINAL DISCOMFORT [None]
  - ANGIOPATHY [None]
  - ARTERIAL OCCLUSIVE DISEASE [None]
  - ARTERIAL STENOSIS [None]
  - ARTERIOSCLEROSIS [None]
  - ASPIRATION [None]
  - BLOOD URIC ACID INCREASED [None]
  - CARDIAC ARREST [None]
  - DIARRHOEA [None]
  - ERYTHEMA [None]
  - FAECAL VOMITING [None]
  - FEMORAL ARTERIAL STENOSIS [None]
  - GASTROENTERITIS [None]
  - HYPOTENSION [None]
  - ILEUS PARALYTIC [None]
  - ISCHAEMIA [None]
  - LEG AMPUTATION [None]
  - LYMPHOSTASIS [None]
  - NEUROPATHY [None]
  - OEDEMA PERIPHERAL [None]
  - PAIN IN EXTREMITY [None]
  - PULSE ABSENT [None]
